FAERS Safety Report 6550500-3 (Version None)
Quarter: 2010Q1

REPORT INFORMATION
  Report Type: 
  Country: None (occurrence: None)
  Receive Date: 20100125
  Receipt Date: 20100119
  Transmission Date: 20100710
  Serious: Yes (Life-Threatening, Hospitalization)
  Sender: FDA-Public Use
  Company Number: B0515100A

PATIENT
  Age: 30 Year
  Sex: Male

DRUGS (4)
  1. CLAMOXYL [Suspect]
     Indication: RHINITIS
     Dosage: 1G SINGLE DOSE
     Route: 048
     Dates: start: 20071231
  2. HELICIDINE [Suspect]
     Indication: DRUG USE FOR UNKNOWN INDICATION
     Dosage: 1UNIT SINGLE DOSE
     Route: 048
     Dates: start: 20071231
  3. PIVALONE [Suspect]
     Indication: DRUG USE FOR UNKNOWN INDICATION
     Dosage: 1UNIT SINGLE DOSE
     Route: 048
     Dates: start: 20071231
  4. HEPARIN [Concomitant]
     Dates: start: 20071231

REACTIONS (9)
  - ANAPHYLACTIC SHOCK [None]
  - BLOOD FIBRINOGEN DECREASED [None]
  - COAGULOPATHY [None]
  - CONVULSION [None]
  - DISSEMINATED INTRAVASCULAR COAGULATION [None]
  - INFECTION [None]
  - LARYNGOSPASM [None]
  - RASH [None]
  - THROMBOCYTOPENIA [None]
